FAERS Safety Report 22196104 (Version 2)
Quarter: 2023Q2

REPORT INFORMATION
  Report Type: Spontaneous
  Country: DE (occurrence: DE)
  Receive Date: 20230411
  Receipt Date: 20230427
  Transmission Date: 20230721
  Serious: Yes (Other)
  Sender: FDA-Public Use
  Company Number: DE-002147023-NVSC2023DE075387

PATIENT

DRUGS (1)
  1. RUXOLITINIB [Suspect]
     Active Substance: RUXOLITINIB
     Indication: Graft versus host disease
     Dosage: UNK
     Route: 065

REACTIONS (1)
  - Skin cancer [Unknown]
